FAERS Safety Report 16441831 (Version 1)
Quarter: 2019Q2

REPORT INFORMATION
  Report Type: Report from Study
  Country: None (occurrence: US)
  Receive Date: 20190617
  Receipt Date: 20190617
  Transmission Date: 20190711
  Serious: No
  Sender: FDA-Public Use
  Company Number: US-US WORLDMEDS, LLC-USW201808-001174

PATIENT
  Age: 69 Year
  Sex: Male

DRUGS (5)
  1. APOKYN [Suspect]
     Active Substance: APOMORPHINE HYDROCHLORIDE
     Route: 058
     Dates: start: 20180802
  2. APOKYN [Suspect]
     Active Substance: APOMORPHINE HYDROCHLORIDE
     Indication: PARKINSON^S DISEASE
     Route: 058
     Dates: start: 20180802, end: 20180806
  3. CARBIDOPA. [Concomitant]
     Active Substance: CARBIDOPA
     Indication: PARKINSON^S DISEASE
  4. TIGAN [Suspect]
     Active Substance: TRIMETHOBENZAMIDE HYDROCHLORIDE
  5. APOKYN [Suspect]
     Active Substance: APOMORPHINE HYDROCHLORIDE
     Route: 058
     Dates: start: 20180822

REACTIONS (6)
  - Dysstasia [Recovered/Resolved]
  - Tremor [Recovered/Resolved]
  - Fear of falling [Recovered/Resolved]
  - Limb discomfort [Recovered/Resolved]
  - Rash [Not Recovered/Not Resolved]
  - Hypoaesthesia [Recovered/Resolved]

NARRATIVE: CASE EVENT DATE: 20180802
